FAERS Safety Report 6911732-5 (Version None)
Quarter: 2010Q3

REPORT INFORMATION
  Report Type: 
  Country: None (occurrence: None)
  Receive Date: 20100806
  Receipt Date: 20100728
  Transmission Date: 20110219
  Serious: Yes (Other)
  Sender: FDA-Public Use
  Company Number: AR-B.I. PHARMACEUTICALS,INC./RIDGEFIELD-2010-BP-08921BP

PATIENT
  Age: 23 Year
  Sex: Female

DRUGS (6)
  1. VIRAMUNE [Suspect]
     Indication: ANTIVIRAL TREATMENT
     Route: 048
     Dates: start: 20040802, end: 20040804
  2. VIRACEPT [Concomitant]
     Indication: ANTIVIRAL TREATMENT
     Route: 048
     Dates: start: 20040805, end: 20040821
  3. VIRACEPT [Concomitant]
     Route: 048
     Dates: start: 20040831
  4. COMBIVIR [Concomitant]
     Indication: ANTIVIRAL TREATMENT
     Route: 048
     Dates: start: 20040802, end: 20040821
  5. COMBIVIR [Concomitant]
     Route: 048
     Dates: start: 20040831
  6. DIPHENHYDRAMINE [Concomitant]

REACTIONS (1)
  - STILLBIRTH [None]
